FAERS Safety Report 6092799-6 (Version None)
Quarter: 2009Q1

REPORT INFORMATION
  Report Type: 
  Country: None (occurrence: None)
  Receive Date: 20090225
  Receipt Date: 20090213
  Transmission Date: 20090719
  Serious: Yes (Other)
  Sender: FDA-Public Use
  Company Number: DE-ROCHE-614731

PATIENT
  Age: 5 Year

DRUGS (5)
  1. FLUMAZENIL [Suspect]
     Indication: ANAESTHESIA REVERSAL
     Route: 042
  2. MIDAZOLAM HCL [Concomitant]
     Indication: PREMEDICATION
  3. KETANEST [Concomitant]
     Indication: PREMEDICATION
  4. PROPOFOL [Concomitant]
     Indication: ANAESTHESIA
  5. REMIFENTANIL [Concomitant]
     Indication: ANAESTHESIA

REACTIONS (1)
  - RESPIRATORY ARREST [None]
